FAERS Safety Report 7001710-2 (Version None)
Quarter: 2010Q3

REPORT INFORMATION
  Report Type: 
  Country: None (occurrence: None)
  Receive Date: 20100920
  Receipt Date: 20100911
  Transmission Date: 20110219
  Serious: Yes (Hospitalization)
  Sender: FDA-Public Use
  Company Number: US-SANOFI-AVENTIS-2010SA055386

PATIENT
  Age: 54 Year
  Sex: Female

DRUGS (2)
  1. LANTUS [Suspect]
     Dosage: 1 TO 2 UNITS
     Route: 058
  2. SOLOSTAR [Suspect]
     Route: 058

REACTIONS (1)
  - DIABETIC COMA [None]
